FAERS Safety Report 14943305 (Version 1)
Quarter: 2018Q2

REPORT INFORMATION
  Report Type: Spontaneous
  Country: ES (occurrence: ES)
  Receive Date: 20180528
  Receipt Date: 20180528
  Transmission Date: 20180711
  Serious: Yes (Other)
  Sender: FDA-Public Use
  Company Number: ES-ALLERGAN-1827862US

PATIENT
  Age: 71 Year
  Sex: Female

DRUGS (1)
  1. FOSFOMYCIN TROMETHAMINE - BP [Suspect]
     Active Substance: FOSFOMYCIN TROMETHAMINE
     Indication: URINARY TRACT INFECTION
     Dosage: 2 G, TID
     Route: 048
     Dates: start: 201804, end: 20180419

REACTIONS (4)
  - Respiratory distress [Unknown]
  - Overdose [Unknown]
  - Depressed level of consciousness [Unknown]
  - Tremor [Unknown]

NARRATIVE: CASE EVENT DATE: 201804
